FAERS Safety Report 16165154 (Version 1)
Quarter: 2019Q2

REPORT INFORMATION
  Report Type: Spontaneous
  Country: ES (occurrence: ES)
  Receive Date: 20190405
  Receipt Date: 20190405
  Transmission Date: 20190711
  Serious: Yes (Other)
  Sender: FDA-Public Use
  Company Number: ES-ELI_LILLY_AND_COMPANY-ES201904000522

PATIENT
  Age: 46 Year
  Sex: Male
  Weight: 130 kg

DRUGS (3)
  1. TESTOGEL [Concomitant]
     Active Substance: TESTOSTERONE
     Indication: PRODUCT USED FOR UNKNOWN INDICATION
     Dosage: UNK UNK, UNKNOWN
     Route: 065
  2. TRULICITY [Suspect]
     Active Substance: DULAGLUTIDE
     Indication: DIABETIC VASCULAR DISORDER
     Dosage: 1.5 MG, WEEKLY (1/W)
     Route: 058
     Dates: start: 20190311, end: 20190314
  3. SIMVASTATINA ACOST [Concomitant]
     Indication: PRODUCT USED FOR UNKNOWN INDICATION
     Dosage: UNK UNK, UNKNOWN
     Route: 065

REACTIONS (4)
  - Dermatitis allergic [Recovered/Resolved]
  - Diarrhoea [Recovered/Resolved]
  - Atrial fibrillation [Recovered/Resolved]
  - Vomiting [Recovered/Resolved]

NARRATIVE: CASE EVENT DATE: 20190314
